FAERS Safety Report 5245846-5 (Version None)
Quarter: 2007Q1

REPORT INFORMATION
  Report Type: 
  Country: None (occurrence: None)
  Receive Date: 20070216
  Receipt Date: 20070202
  Transmission Date: 20070707
  Serious: Yes (Hospitalization)
  Sender: FDA-Public Use
  Company Number: 2007000222

PATIENT
  Age: 43 Year
  Sex: Female
  Weight: 53.5 kg

DRUGS (5)
  1. TARCEVA [Suspect]
     Indication: CERVIX CARCINOMA
     Dosage: 100 MG (QD), ORAL
     Route: 048
     Dates: start: 20070110
  2. IRINOTECAN (IRINOTECAN) (INJECTION FOR INFUSION) [Suspect]
     Indication: CERVIX CARCINOMA
     Dosage: 235 MG/M2 (Q 21 DAYS), INTRAVENOUS
     Route: 042
     Dates: start: 20070110
  3. EFFEXOR [Concomitant]
  4. TRAMADOL HCL [Concomitant]
  5. MULTIVITAMIN [Concomitant]

REACTIONS (9)
  - DEHYDRATION [None]
  - DIARRHOEA [None]
  - HAEMOGLOBIN DECREASED [None]
  - HYPOKALAEMIA [None]
  - HYPONATRAEMIA [None]
  - NAUSEA [None]
  - NEUTROPENIA [None]
  - PYREXIA [None]
  - VOMITING [None]
